FAERS Safety Report 22044900 (Version 1)
Quarter: 2023Q1

REPORT INFORMATION
  Report Type: Spontaneous
  Country: FR (occurrence: FR)
  Receive Date: 20230228
  Receipt Date: 20230228
  Transmission Date: 20230418
  Serious: Yes (Other)
  Sender: FDA-Public Use
  Company Number: FR-002147023-NVSC2023FR045410

PATIENT
  Age: 55 Year
  Sex: Female

DRUGS (1)
  1. FEMARA [Suspect]
     Active Substance: LETROZOLE
     Indication: Breast cancer
     Dosage: 2.5 MG
     Route: 065

REACTIONS (2)
  - Diabetes mellitus [Unknown]
  - Glycosylated haemoglobin increased [Unknown]
